FAERS Safety Report 6540430-5 (Version None)
Quarter: 2010Q1

REPORT INFORMATION
  Report Type: 
  Country: None (occurrence: None)
  Receive Date: 20100113
  Receipt Date: 20091228
  Transmission Date: 20100710
  Serious: Yes (Hospitalization)
  Sender: FDA-Public Use
  Company Number: US020608

PATIENT
  Age: 65 Year
  Sex: Male
  Weight: 72 kg

DRUGS (2)
  1. TREANDA [Suspect]
     Indication: NON-HODGKIN'S LYMPHOMA
     Dosage: DAYS 1 AND 2 EVERY THREE WEEKS (120 MG/M2, DAY 1 + 2 CYCLES 1-5), INTRAVENOUS 90 MG/M2 (90 MG/M2, DA
     Dates: end: 20070411
  2. TREANDA [Suspect]
     Indication: NON-HODGKIN'S LYMPHOMA
     Dosage: DAYS 1 AND 2 EVERY THREE WEEKS (120 MG/M2, DAY 1 + 2 CYCLES 1-5), INTRAVENOUS 90 MG/M2 (90 MG/M2, DA
     Dates: start: 20061114

REACTIONS (13)
  - ANAEMIA [None]
  - ASTHENIA [None]
  - DRUG TOXICITY [None]
  - FAECAL INCONTINENCE [None]
  - INFECTION [None]
  - MALIGNANT NEOPLASM PROGRESSION [None]
  - MENTAL STATUS CHANGES [None]
  - NEUROGENIC BLADDER [None]
  - NEUROPATHY PERIPHERAL [None]
  - PARALYSIS [None]
  - URINARY INCONTINENCE [None]
  - URINARY RETENTION [None]
  - WEIGHT DECREASED [None]
